FAERS Safety Report 6373792-2 (Version None)
Quarter: 2009Q3

REPORT INFORMATION
  Report Type: 
  Country: None (occurrence: None)
  Receive Date: 20090924
  Receipt Date: 20090604
  Transmission Date: 20100115
  Serious: No
  Sender: FDA-Public Use
  Company Number: US-ASTRAZENECA-2009UW14253

PATIENT
  Age: 51 Year
  Sex: Male

DRUGS (2)
  1. SEROQUEL [Suspect]
     Route: 048
  2. METAZOPINE [Concomitant]

REACTIONS (2)
  - HYPOAESTHESIA [None]
  - RESTLESS LEGS SYNDROME [None]
